FAERS Safety Report 4782950-X (Version None)
Quarter: 2005Q3

REPORT INFORMATION
  Report Type: 
  Country: None (occurrence: None)
  Receive Date: 20050927
  Receipt Date: 20050915
  Transmission Date: 20060218
  Serious: Yes (Hospitalization)
  Sender: FDA-Public Use
  Company Number: 2005BI013161

PATIENT
  Age: 39 Year
  Sex: Female
  Weight: 43.0917 kg

DRUGS (2)
  1. AVONEX [Suspect]
     Indication: MULTIPLE SCLEROSIS
     Dosage: 30 UG; QW; IM
     Route: 030
     Dates: start: 19980901, end: 20030801
  2. AVONEX [Suspect]
     Indication: MULTIPLE SCLEROSIS
     Dosage: 30 UG; QW; IM
     Route: 030
     Dates: start: 20030801

REACTIONS (9)
  - ANXIETY [None]
  - ARTHRITIS [None]
  - BACK PAIN [None]
  - CHEST WALL PAIN [None]
  - DYSPNOEA [None]
  - INSOMNIA [None]
  - LUNG DISORDER [None]
  - PAIN [None]
  - WEIGHT DECREASED [None]
